FAERS Safety Report 21182098 (Version 1)
Quarter: 2022Q3

REPORT INFORMATION
  Report Type: Report from Study
  Country: CA (occurrence: CA)
  Receive Date: 20220807
  Receipt Date: 20220807
  Transmission Date: 20221027
  Serious: Yes (Hospitalization, Other)
  Sender: FDA-Public Use
  Company Number: CA-JNJFOC-20220805709

PATIENT
  Age: 70 Year
  Sex: Female

DRUGS (1)
  1. SIMPONI [Suspect]
     Active Substance: GOLIMUMAB
     Indication: Psoriatic arthropathy
     Route: 058
     Dates: start: 20210619

REACTIONS (2)
  - Knee arthroplasty [Recovered/Resolved]
  - Nosocomial infection [Recovered/Resolved]

NARRATIVE: CASE EVENT DATE: 20220421
